FAERS Safety Report 16427344 (Version 2)
Quarter: 2021Q4

REPORT INFORMATION
  Report Type: Report from Study
  Country: US (occurrence: US)
  Receive Date: 20190613
  Receipt Date: 20211025
  Transmission Date: 20220303
  Serious: Yes (Hospitalization, Other)
  Sender: FDA-Public Use
  Company Number: PHEH2019US024316

PATIENT
  Sex: Female

DRUGS (1)
  1. GLEEVEC [Suspect]
     Active Substance: IMATINIB MESYLATE
     Indication: Product used for unknown indication
     Dosage: UNK
     Route: 065

REACTIONS (7)
  - Leukaemia [Unknown]
  - Drug dependence [Unknown]
  - Decreased appetite [Unknown]
  - Fear [Unknown]
  - Mental disorder [Unknown]
  - Insomnia [Unknown]
  - Feeling abnormal [Unknown]
